FAERS Safety Report 5221022-7 (Version None)
Quarter: 2007Q1

REPORT INFORMATION
  Report Type: 
  Country: None (occurrence: None)
  Receive Date: 20070126
  Receipt Date: 20061218
  Transmission Date: 20070707
  Serious: Yes (Hospitalization)
  Sender: FDA-Public Use
  Company Number: FR-NOVOPROD-259418

PATIENT
  Age: 81 Year
  Sex: Female

DRUGS (9)
  1. NOVONORM [Suspect]
     Indication: DIABETES MELLITUS
     Dosage: UNK, QD
     Route: 048
     Dates: end: 20061105
  2. ACARBOSE [Concomitant]
     Indication: DIABETES MELLITUS
     Route: 048
     Dates: end: 20061105
  3. LASIX [Concomitant]
     Dosage: 250 MG, QD
     Route: 048
  4. LEVOTHYROXINE SODIUM [Concomitant]
     Dosage: 100 UG, QD
     Route: 048
  5. FOZITEC [Concomitant]
     Dosage: 10 MG, QD
     Route: 048
     Dates: start: 20060915, end: 20061105
  6. HYDREA [Concomitant]
  7. AVLOCARDYL [Concomitant]
  8. PREVISCAN [Concomitant]
  9. INIPOMP [Concomitant]

REACTIONS (1)
  - RENAL FAILURE ACUTE [None]
